FAERS Safety Report 14386055 (Version 1)
Quarter: 2018Q1

REPORT INFORMATION
  Report Type: Spontaneous
  Country: US (occurrence: US)
  Receive Date: 20180115
  Receipt Date: 20180115
  Transmission Date: 20180509
  Serious: No
  Sender: FDA-Public Use
  Company Number: PHEH2018US001643

PATIENT

DRUGS (3)
  1. DOCETAXEL. [Suspect]
     Active Substance: DOCETAXEL
     Indication: BREAST CANCER
     Route: 065
     Dates: start: 201111
  2. DOCETAXEL. [Suspect]
     Active Substance: DOCETAXEL
     Indication: BREAST CANCER
     Route: 065
     Dates: start: 201111
  3. TAXOTERE [Suspect]
     Active Substance: DOCETAXEL
     Indication: BREAST CANCER
     Route: 065
     Dates: start: 201111

REACTIONS (7)
  - Pain [Unknown]
  - Injury [Unknown]
  - Anxiety [Unknown]
  - Anhedonia [Unknown]
  - Discomfort [Unknown]
  - Alopecia [Not Recovered/Not Resolved]
  - Emotional distress [Unknown]
